FAERS Safety Report 10478250 (Version 1)
Quarter: 2014Q3

REPORT INFORMATION
  Report Type: Spontaneous
  Country: US (occurrence: None)
  Receive Date: 20140925
  Receipt Date: 20140925
  Transmission Date: 20150326
  Serious: Yes (Other)
  Sender: FDA-Public Use
  Company Number: None

PATIENT
  Age: 59 Year
  Sex: Female
  Weight: 106 kg

DRUGS (1)
  1. WALGREENS INFANTS AND CHILDRENS SALINE NASAL [Suspect]
     Active Substance: SODIUM CHLORIDE
     Indication: NASAL IRRIGATION
     Route: 045
     Dates: start: 20140922, end: 20140922

REACTIONS (2)
  - Burning sensation [None]
  - Pain [None]

NARRATIVE: CASE EVENT DATE: 20140922
